FAERS Safety Report 14872239 (Version 10)
Quarter: 2019Q4

REPORT INFORMATION
  Report Type: Report from Study
  Country: CA (occurrence: CA)
  Receive Date: 20180509
  Receipt Date: 20191101
  Transmission Date: 20200122
  Serious: Yes (Hospitalization, Other)
  Sender: FDA-Public Use
  Company Number: CA-BRISTOL-MYERS SQUIBB COMPANY-BMS-2018-031374

PATIENT
  Age: 76 Year
  Sex: Male

DRUGS (3)
  1. ABATACEPT [Suspect]
     Active Substance: ABATACEPT
     Indication: PRODUCT USED FOR UNKNOWN INDICATION
     Dosage: 125 MG/ML, QWK
     Route: 065
     Dates: start: 201801
  2. ABATACEPT [Suspect]
     Active Substance: ABATACEPT
     Indication: PRODUCT USED FOR UNKNOWN INDICATION
     Dosage: 125 MILLIGRAM, QWK
     Route: 058
     Dates: start: 20180223
  3. ABATACEPT [Suspect]
     Active Substance: ABATACEPT
     Indication: RHEUMATOID ARTHRITIS
     Dosage: 125 MG, QWK
     Route: 058
     Dates: start: 2012

REACTIONS (19)
  - Muscle spasms [Recovered/Resolved]
  - Poor quality sleep [Unknown]
  - Haemoglobin decreased [Unknown]
  - Abscess [Unknown]
  - Dry skin [Unknown]
  - Paralysis [Unknown]
  - Erythema [Unknown]
  - Neck pain [Recovering/Resolving]
  - Arthralgia [Recovering/Resolving]
  - Groin pain [Unknown]
  - Tooth extraction [Unknown]
  - Pain [Unknown]
  - Postoperative wound infection [Unknown]
  - Musculoskeletal pain [Unknown]
  - Haemoglobin abnormal [Recovered/Resolved]
  - Bacterial infection [Unknown]
  - Tooth fracture [Unknown]
  - Nasopharyngitis [Unknown]
  - Arthropathy [Unknown]

NARRATIVE: CASE EVENT DATE: 20180618
